FAERS Safety Report 9159846 (Version 3)
Quarter: 2013Q4

REPORT INFORMATION
  Report Type: Spontaneous
  Country: US (occurrence: US)
  Receive Date: 20130313
  Receipt Date: 20131003
  Transmission Date: 20140711
  Serious: Yes (Other)
  Sender: FDA-Public Use
  Company Number: US-BRISTOL-MYERS SQUIBB COMPANY-17311820

PATIENT
  Age: 84 Year
  Sex: Male
  Weight: 83.9 kg

DRUGS (2)
  1. ABATACEPT SUBQ INJECTION 125MG/ML [Suspect]
     Indication: RHEUMATOID ARTHRITIS
     Dosage: LAST DOSE:17JAN2013,13SEP13
     Route: 058
  2. METHOTREXATE [Concomitant]

REACTIONS (4)
  - Arthropathy [Unknown]
  - Drug dose omission [Unknown]
  - Infection [Unknown]
  - Fall [Unknown]
